FAERS Safety Report 9012949 (Version 1)
Quarter: 2013Q1

REPORT INFORMATION
  Report Type: Spontaneous
  Country: US (occurrence: US)
  Receive Date: 20130114
  Receipt Date: 20130114
  Transmission Date: 20140127
  Serious: Yes (Death)
  Sender: FDA-Public Use
  Company Number: US-GLAXOSMITHKLINE-A1008251A

PATIENT
  Age: 66 Year
  Sex: Male

DRUGS (9)
  1. VOTRIENT [Suspect]
     Indication: RENAL CANCER
     Dosage: 800MG PER DAY
     Route: 048
     Dates: start: 20120926, end: 201210
  2. MVI [Concomitant]
  3. ALVESCO [Concomitant]
  4. ISOSORBIDE [Concomitant]
  5. LASIX [Concomitant]
  6. DIGOXIN [Concomitant]
  7. CARVEDILOL [Concomitant]
  8. WELLBUTRIN [Concomitant]
  9. POTASSIUM [Concomitant]

REACTIONS (1)
  - Death [Fatal]
